FAERS Safety Report 10441379 (Version 2)
Quarter: 2014Q3

REPORT INFORMATION
  Report Type: Report from Study
  Country: US (occurrence: US)
  Receive Date: 20140909
  Receipt Date: 20140909
  Transmission Date: 20150326
  Serious: Yes (Death, Hospitalization, Other)
  Sender: FDA-Public Use
  Company Number: US-ASTELLAS-2014US011785

PATIENT
  Sex: Male

DRUGS (5)
  1. DURAGESIC [Concomitant]
     Active Substance: FENTANYL
     Indication: PRODUCT USED FOR UNKNOWN INDICATION
     Route: 065
  2. ERLOTINIB [Suspect]
     Active Substance: ERLOTINIB
     Indication: LUNG CARCINOMA CELL TYPE UNSPECIFIED STAGE IV
  3. ERLOTINIB [Suspect]
     Active Substance: ERLOTINIB
     Indication: NON-SMALL CELL LUNG CANCER
  4. OXALIPLATIN. [Concomitant]
     Active Substance: OXALIPLATIN
     Indication: PRODUCT USED FOR UNKNOWN INDICATION
     Dosage: UNK UNK, UNKNOWN FREQ.
     Route: 065
  5. ERLOTINIB [Suspect]
     Active Substance: ERLOTINIB
     Indication: MALIGNANT RESPIRATORY TRACT NEOPLASM
     Route: 048
     Dates: start: 20050809, end: 20051017

REACTIONS (2)
  - Non-small cell lung cancer [Fatal]
  - Pain [Not Recovered/Not Resolved]
